FAERS Safety Report 11020672 (Version 1)
Quarter: 2015Q2

REPORT INFORMATION
  Report Type: Spontaneous
  Country: CN (occurrence: CN)
  Receive Date: 20150413
  Receipt Date: 20150413
  Transmission Date: 20150821
  Serious: Yes (Other)
  Sender: FDA-Public Use
  Company Number: CN-ACCORD-029933

PATIENT
  Age: 64 Year
  Sex: Male

DRUGS (2)
  1. ICOTINIB [Suspect]
     Active Substance: ICOTINIB
     Indication: PANCREATIC CARCINOMA
     Dosage: 125 MG TID?ON DAYS 1, 8, AND 15 EVERY FOUR WEEKS.
  2. GEMCITABINE/GEMCITABINE HYDROCHLORIDE [Suspect]
     Active Substance: GEMCITABINE\GEMCITABINE HYDROCHLORIDE
     Indication: PANCREATIC CARCINOMA
     Dosage: ON DAYS 1, 8, AND 15 EVERY FOUR WEEKS.

REACTIONS (7)
  - Jaundice cholestatic [Unknown]
  - Liver injury [Recovered/Resolved]
  - Alanine aminotransferase increased [None]
  - Blood bilirubin increased [None]
  - Rash [Recovered/Resolved]
  - Bone marrow failure [Recovered/Resolved]
  - Aspartate aminotransferase increased [None]
